FAERS Safety Report 24985454 (Version 3)
Quarter: 2025Q2

REPORT INFORMATION
  Report Type: Spontaneous
  Country: US (occurrence: US)
  Receive Date: 20250219
  Receipt Date: 20250406
  Transmission Date: 20250716
  Serious: No
  Sender: GLAXOSMITHKLINE
  Company Number: US-GSK-US2025020000

PATIENT
  Sex: Female

DRUGS (2)
  1. NUCALA [Suspect]
     Active Substance: MEPOLIZUMAB
     Indication: Asthma
     Dosage: 100 MG, Q4W (IN THE UPPER ARM, THIGH OR ABDOMEN)
     Route: 058
     Dates: start: 202501
  2. NUCALA [Suspect]
     Active Substance: MEPOLIZUMAB
     Indication: Eosinophilia

REACTIONS (5)
  - Cough [Not Recovered/Not Resolved]
  - Dyspnoea [Unknown]
  - Productive cough [Unknown]
  - Loss of personal independence in daily activities [Unknown]
  - Product dose omission issue [Unknown]
